FAERS Safety Report 6961621-5 (Version None)
Quarter: 2010Q3

REPORT INFORMATION
  Report Type: 
  Country: None (occurrence: None)
  Receive Date: 20100901
  Receipt Date: 20100827
  Transmission Date: 20110219
  Serious: No
  Sender: FDA-Public Use
  Company Number: US-PFIZER INC-2010108598

PATIENT
  Sex: Female
  Weight: 56.689 kg

DRUGS (4)
  1. CELEBREX [Suspect]
     Indication: ARTHRITIS
     Dosage: 200 MG, 2X/DAY
     Route: 048
     Dates: start: 20100825, end: 20100829
  2. CELEBREX [Suspect]
     Dosage: 200 MG, 1X/DAY
     Route: 048
     Dates: start: 20100830
  3. FLUOXETINE [Concomitant]
     Indication: ARTHRITIS
     Dosage: UNK
     Dates: start: 20080101
  4. FLUOXETINE [Concomitant]
     Indication: FIBROMYALGIA

REACTIONS (3)
  - INFLUENZA LIKE ILLNESS [None]
  - OROPHARYNGEAL PAIN [None]
  - THROAT IRRITATION [None]
